FAERS Safety Report 8575637 (Version 3)
Quarter: 2013Q2

REPORT INFORMATION
  Report Type: Spontaneous
  Country: US (occurrence: US)
  Receive Date: 20120523
  Receipt Date: 20130603
  Transmission Date: 20140414
  Serious: No
  Sender: FDA-Public Use
  Company Number: US-ASTRAZENECA-2012SE15385

PATIENT
  Age: 42 Year
  Sex: Female

DRUGS (2)
  1. NEXIUM [Suspect]
     Indication: GASTROOESOPHAGEAL REFLUX DISEASE
     Route: 048
     Dates: start: 201202
  2. ZANTAC [Concomitant]

REACTIONS (7)
  - Exposure during pregnancy [Unknown]
  - Gastrooesophageal reflux disease [Unknown]
  - Dyspepsia [Unknown]
  - Laryngitis [Unknown]
  - Sinus disorder [Unknown]
  - Nasopharyngitis [Unknown]
  - Stress [Unknown]
